FAERS Safety Report 6105292-9 (Version None)
Quarter: 2009Q1

REPORT INFORMATION
  Report Type: 
  Country: None (occurrence: None)
  Receive Date: 20090306
  Receipt Date: 20090227
  Transmission Date: 20090719
  Serious: Yes (Hospitalization)
  Sender: FDA-Public Use
  Company Number: US-EISAI MEDIAL RESEARCH-E3810-02606-SPO-US

PATIENT
  Age: 70 Year
  Sex: Female

DRUGS (4)
  1. ACIPHEX [Suspect]
     Indication: REFLUX OESOPHAGITIS
     Route: 048
     Dates: start: 20081001
  2. BETA BLOCKER [Concomitant]
     Indication: CARDIAC DISORDER
     Route: 048
     Dates: start: 20090205
  3. ASPIRIN [Concomitant]
     Route: 048
  4. THYROID MEDICATION [Concomitant]
     Indication: THYROID DISORDER
     Route: 048
     Dates: start: 20090205

REACTIONS (4)
  - ABNORMAL FAECES [None]
  - ATRIAL FIBRILLATION [None]
  - FLATULENCE [None]
  - THYROID DISORDER [None]
